FAERS Safety Report 11216405 (Version 1)
Quarter: 2015Q2

REPORT INFORMATION
  Report Type: Spontaneous
  Country: US (occurrence: None)
  Receive Date: 20150623
  Receipt Date: 20150623
  Transmission Date: 20150821
  Serious: Yes (Other)
  Sender: FDA-Public Use
  Company Number: None

PATIENT
  Age: 30 Year
  Sex: Female
  Weight: 54.43 kg

DRUGS (6)
  1. DULOXETINE XANAX [Concomitant]
  2. GABBAPENTIN [Concomitant]
  3. OXYCODONE [Concomitant]
     Active Substance: OXYCODONE
  4. HALDOL [Concomitant]
     Active Substance: HALOPERIDOL
  5. TITANIUM PLATE [Concomitant]
  6. NAVANE [Suspect]
     Active Substance: THIOTHIXENE
     Indication: SCHIZOPHRENIA
     Dosage: 60 ?TWICE DAILY?TAKEN BY MOUTH
     Route: 048

REACTIONS (1)
  - Dental caries [None]

NARRATIVE: CASE EVENT DATE: 20150609
